FAERS Safety Report 4704949-1 (Version None)
Quarter: 2005Q3

REPORT INFORMATION
  Report Type: 
  Country: None (occurrence: None)
  Receive Date: 20050701
  Receipt Date: 20050321
  Transmission Date: 20060218
  Serious: Yes (Death)
  Sender: FDA-Public Use
  Company Number: GB-BOEHRINGER INGELHEIM PHARMACEUTICALS, INC.-2005-UK-00489UK

PATIENT
  Sex: Male

DRUGS (5)
  1. SPIRIVA [Suspect]
     Indication: CHRONIC OBSTRUCTIVE PULMONARY DISEASE
     Dates: start: 20050212
  2. BECOTIDE [Concomitant]
     Dosage: NOT REPORTED
  3. SALBUTAMOL [Concomitant]
  4. ATROVENT [Concomitant]
  5. SERETIDE [Concomitant]

REACTIONS (5)
  - CATARACT [None]
  - GLAUCOMA [None]
  - LUNG NEOPLASM MALIGNANT [None]
  - METASTASES TO CENTRAL NERVOUS SYSTEM [None]
  - METASTASIS [None]
